FAERS Safety Report 17823150 (Version 1)
Quarter: 2020Q2

REPORT INFORMATION
  Report Type: Spontaneous
  Country: US (occurrence: US)
  Receive Date: 20200523
  Receipt Date: 20200523
  Transmission Date: 20200714
  Serious: Yes (Life-Threatening, Hospitalization, Disabling, Other)
  Sender: FDA-Public Use
  Company Number: None

PATIENT
  Age: 43 Year
  Sex: Female
  Weight: 36.29 kg

DRUGS (1)
  1. AIMOVIG [Suspect]
     Active Substance: ERENUMAB-AOOE

REACTIONS (6)
  - Loss of consciousness [None]
  - Cerebrovascular accident [None]
  - Seizure [None]
  - Fall [None]
  - Haemorrhage [None]
  - Gait inability [None]

NARRATIVE: CASE EVENT DATE: 20191020
